FAERS Safety Report 6579615-0 (Version None)
Quarter: 2010Q1

REPORT INFORMATION
  Report Type: 
  Country: None (occurrence: None)
  Receive Date: 20100209
  Receipt Date: 20100209
  Transmission Date: 20100710
  Serious: Yes (Hospitalization)
  Sender: FDA-Public Use
  Company Number: None

PATIENT
  Age: 24 Year
  Sex: Female
  Weight: 36 kg

DRUGS (1)
  1. OXYCONTIN [Suspect]
     Indication: PAIN
     Dosage: ^VARYING^ ACCORDING TO DR. DAILY PO
     Route: 048
     Dates: start: 20100101, end: 20100201

REACTIONS (3)
  - CHEST DISCOMFORT [None]
  - SHOCK [None]
  - URTICARIA [None]
